FAERS Safety Report 9242350 (Version 1)
Quarter: 2013Q2

REPORT INFORMATION
  Report Type: Spontaneous
  Country: IT (occurrence: IT)
  Receive Date: 20130419
  Receipt Date: 20130419
  Transmission Date: 20140414
  Serious: Yes (Hospitalization)
  Sender: FDA-Public Use
  Company Number: IT-PFIZER INC-2013119982

PATIENT
  Age: 77 Year
  Sex: Male

DRUGS (12)
  1. TORVAST [Suspect]
     Indication: HYPERCHOLESTEROLAEMIA
     Dosage: 10 MG, DAILY
     Route: 048
     Dates: start: 20100510, end: 20120707
  2. DILATREND [Concomitant]
     Dosage: UNK
  3. MONOKET [Concomitant]
     Dosage: UNK
  4. PLAVIX [Concomitant]
     Dosage: UNK
  5. ASCRIPTIN [Concomitant]
     Dosage: UNK
  6. AMIODAR [Concomitant]
     Dosage: UNK
  7. MIRAPEXIN [Concomitant]
     Dosage: UNK
  8. ENAPREN [Concomitant]
     Dosage: UNK
  9. MINITRAN [Concomitant]
     Dosage: UNK
  10. PANTOPRAZOLE [Concomitant]
     Dosage: UNK
  11. JUMEX [Concomitant]
     Dosage: UNK
  12. LASIX [Concomitant]
     Dosage: UNK

REACTIONS (2)
  - Hypercreatinaemia [Unknown]
  - Blood creatine phosphokinase increased [Unknown]
